FAERS Safety Report 16408072 (Version 1)
Quarter: 2019Q2

REPORT INFORMATION
  Report Type: Spontaneous
  Country: DK (occurrence: DK)
  Receive Date: 20190610
  Receipt Date: 20190610
  Transmission Date: 20190711
  Serious: Yes (Life-Threatening)
  Sender: FDA-Public Use
  Company Number: DK-SAMSUNG BIOEPIS-SB-2019-13280

PATIENT
  Age: 55 Year
  Sex: Male

DRUGS (3)
  1. BENEPALI [Suspect]
     Active Substance: ETANERCEPT
     Indication: ANKYLOSING SPONDYLITIS
     Dosage: STRENGTH: 50 MG.
     Route: 058
     Dates: start: 20160811, end: 20180815
  2. NASONEX [Concomitant]
     Active Substance: MOMETASONE FUROATE
     Indication: SEASONAL ALLERGY
     Dosage: STRENGTH: 50 MCG / DOSE
     Route: 045
     Dates: start: 20160427
  3. IBUPROFEN ACTAVIS [Concomitant]
     Active Substance: IBUPROFEN
     Indication: PAIN
     Dosage: DOSAGE: 1 TABLET AS NEEDED, NO MORE THAN 4 TIMES DAILY. STRENGTH: 400 MG
     Route: 048
     Dates: start: 20170105

REACTIONS (6)
  - Cough [Not Recovered/Not Resolved]
  - Productive cough [Not Recovered/Not Resolved]
  - Product use issue [Unknown]
  - Musculoskeletal pain [Not Recovered/Not Resolved]
  - Non-small cell lung cancer stage IV [Not Recovered/Not Resolved]
  - Dyspnoea [Not Recovered/Not Resolved]

NARRATIVE: CASE EVENT DATE: 2018
